FAERS Safety Report 6301819-2 (Version None)
Quarter: 2009Q3

REPORT INFORMATION
  Report Type: 
  Country: None (occurrence: None)
  Receive Date: 20090807
  Receipt Date: 20090730
  Transmission Date: 20100115
  Serious: Yes (Disabling, Other)
  Sender: FDA-Public Use
  Company Number: GB-AVENTIS-200917333GDDC

PATIENT
  Age: 30 Year
  Sex: Female
  Weight: 74 kg

DRUGS (4)
  1. TELFAST                            /01314201/ [Suspect]
     Dates: start: 20061016, end: 20080408
  2. MICROGYNON                         /00022701/ [Concomitant]
     Indication: CONTRACEPTION
     Route: 048
     Dates: start: 20061009, end: 20090325
  3. CETIRIZINE [Concomitant]
  4. CERAZETTE                          /00754001/ [Concomitant]

REACTIONS (20)
  - BALANCE DISORDER [None]
  - CLUMSINESS [None]
  - CRYING [None]
  - DEPRESSION [None]
  - DISORIENTATION [None]
  - DISTURBANCE IN ATTENTION [None]
  - DIZZINESS [None]
  - FATIGUE [None]
  - FEELING ABNORMAL [None]
  - HEADACHE [None]
  - LETHARGY [None]
  - MEMORY IMPAIRMENT [None]
  - NAUSEA [None]
  - PALPITATIONS [None]
  - PARAESTHESIA [None]
  - SENSATION OF HEAVINESS [None]
  - THERAPEUTIC RESPONSE UNEXPECTED [None]
  - THINKING ABNORMAL [None]
  - TINNITUS [None]
  - VISION BLURRED [None]
